FAERS Safety Report 7682700-3 (Version None)
Quarter: 2011Q3

REPORT INFORMATION
  Report Type: 
  Country: None (occurrence: None)
  Receive Date: 20110810
  Receipt Date: 20110726
  Transmission Date: 20111222
  Serious: Yes (Hospitalization)
  Sender: FDA-Public Use
  Company Number: TCI2011A03840

PATIENT
  Age: 69 Year
  Sex: Female

DRUGS (15)
  1. GLYBURIDE [Concomitant]
  2. SEIBULE (MIGLITOL) [Concomitant]
  3. ZETIA [Concomitant]
  4. NITREDIPINE [Concomitant]
  5. METFORMIN HYDROCHLORIDE [Suspect]
  6. ACTOS [Suspect]
     Indication: TYPE 2 DIABETES MELLITUS
     Dosage: 30 MG (30 MG,1 IN 1 D); 15 MG (15 MG,1 IN 1 D); 30 MG (30 MG,1 IN 1 D); (15 MG,1 IN 1 D)
     Route: 048
     Dates: start: 20031212, end: 20040901
  7. ACTOS [Suspect]
     Indication: TYPE 2 DIABETES MELLITUS
     Dosage: 30 MG (30 MG,1 IN 1 D); 15 MG (15 MG,1 IN 1 D); 30 MG (30 MG,1 IN 1 D); (15 MG,1 IN 1 D)
     Route: 048
     Dates: start: 20040901, end: 20050401
  8. ACTOS [Suspect]
     Indication: TYPE 2 DIABETES MELLITUS
     Dosage: 30 MG (30 MG,1 IN 1 D); 15 MG (15 MG,1 IN 1 D); 30 MG (30 MG,1 IN 1 D); (15 MG,1 IN 1 D)
     Route: 048
     Dates: start: 20050401, end: 20060501
  9. ACTOS [Suspect]
     Indication: TYPE 2 DIABETES MELLITUS
     Dosage: 30 MG (30 MG,1 IN 1 D); 15 MG (15 MG,1 IN 1 D); 30 MG (30 MG,1 IN 1 D); (15 MG,1 IN 1 D)
     Route: 048
     Dates: start: 20060501, end: 20110611
  10. PRAVASTATIN SODIUM [Concomitant]
  11. AMARYL [Concomitant]
  12. BASEN TABLETS [Concomitant]
  13. NESINA TABLETS [Concomitant]
  14. LISINOPRIL [Concomitant]
  15. OLMESARTAN MEDOXOMIL [Concomitant]

REACTIONS (8)
  - OEDEMA PERIPHERAL [None]
  - COUGH [None]
  - SPONDYLOLISTHESIS [None]
  - GASTROENTERITIS [None]
  - BLOOD CREATININE INCREASED [None]
  - BLADDER CANCER [None]
  - HAEMATURIA [None]
  - REFUSAL OF TREATMENT BY PATIENT [None]
